FAERS Safety Report 14074350 (Version 1)
Quarter: 2017Q4

REPORT INFORMATION
  Report Type: Spontaneous
  Country: US (occurrence: US)
  Receive Date: 20171011
  Receipt Date: 20171011
  Transmission Date: 20180321
  Serious: Yes (Other)
  Sender: FDA-Public Use
  Company Number: US-GLAXOSMITHKLINE-US2017GSK155497

PATIENT
  Sex: Female

DRUGS (13)
  1. MUCINEX DM [Concomitant]
     Active Substance: DEXTROMETHORPHAN HYDROBROMIDE\GUAIFENESIN
  2. CREON [Concomitant]
     Active Substance: PANCRELIPASE AMYLASE\PANCRELIPASE LIPASE\PANCRELIPASE PROTEASE
  3. DUONEB [Concomitant]
     Active Substance: ALBUTEROL SULFATE\IPRATROPIUM BROMIDE
  4. GABAPENTIN. [Concomitant]
     Active Substance: GABAPENTIN
  5. SYMBICORT [Concomitant]
     Active Substance: BUDESONIDE\FORMOTEROL FUMARATE DIHYDRATE
  6. LASIX [Concomitant]
     Active Substance: FUROSEMIDE
  7. SPIRIVA [Concomitant]
     Active Substance: TIOTROPIUM BROMIDE MONOHYDRATE
  8. CIPRO [Suspect]
     Active Substance: CIPROFLOXACIN HYDROCHLORIDE
     Indication: PNEUMONIA
     Dosage: UNK
     Dates: start: 20170601
  9. BACLOFEN. [Concomitant]
     Active Substance: BACLOFEN
  10. PREDNISONE. [Concomitant]
     Active Substance: PREDNISONE
  11. VENTOLIN HFA [Suspect]
     Active Substance: ALBUTEROL SULFATE
     Indication: CHRONIC OBSTRUCTIVE PULMONARY DISEASE
     Dosage: 2 PUFF(S), UNK
     Route: 055
     Dates: start: 2015
  12. VENTOLIN HFA [Suspect]
     Active Substance: ALBUTEROL SULFATE
     Indication: ASTHMA
  13. SYNTHROID [Concomitant]
     Active Substance: LEVOTHYROXINE SODIUM

REACTIONS (10)
  - Dyspnoea [Unknown]
  - Pneumonia [Not Recovered/Not Resolved]
  - Cough [Unknown]
  - Vomiting [Unknown]
  - Renal pain [Unknown]
  - Nephrolithiasis [Unknown]
  - Wheezing [Unknown]
  - Overdose [Unknown]
  - Sputum discoloured [Unknown]
  - Asthma [Unknown]

NARRATIVE: CASE EVENT DATE: 20170301
